FAERS Safety Report 24002866 (Version 1)
Quarter: 2024Q2

REPORT INFORMATION
  Report Type: Spontaneous
  Country: US (occurrence: US)
  Receive Date: 20240624
  Receipt Date: 20240624
  Transmission Date: 20240715
  Serious: No
  Sender: FDA-Public Use
  Company Number: US-AMGEN-USASP2024119707

PATIENT
  Age: 69 Year
  Sex: Male

DRUGS (3)
  1. REPATHA [Suspect]
     Active Substance: EVOLOCUMAB
     Indication: Blood cholesterol decreased
     Dosage: 140 MILLIGRAM, Q2WK
     Route: 058
     Dates: start: 20240529
  2. PREDNISONE [Concomitant]
     Active Substance: PREDNISONE
     Indication: Autoimmune hepatitis
     Dosage: 20 MILLIGRAM, QD
     Dates: start: 202403
  3. AZATHIOPRINE [Concomitant]
     Active Substance: AZATHIOPRINE
     Indication: Autoimmune hepatitis
     Dosage: 50 MILLIGRAM, QD
     Dates: start: 202405

REACTIONS (9)
  - Respiratory disorder [Unknown]
  - Immune system disorder [Unknown]
  - Pyrexia [Unknown]
  - Productive cough [Unknown]
  - Upper respiratory tract congestion [Unknown]
  - Oropharyngeal pain [Unknown]
  - Fatigue [Unknown]
  - Influenza like illness [Unknown]
  - Back pain [Unknown]

NARRATIVE: CASE EVENT DATE: 20240613
